FAERS Safety Report 5275569-8 (Version None)
Quarter: 2007Q1

REPORT INFORMATION
  Report Type: 
  Country: None (occurrence: None)
  Receive Date: 20061213
  Receipt Date: 20060613
  Transmission Date: 20070707
  Serious: Yes (Hospitalization)
  Sender: FDA-Public Use
  Company Number: 2006UW07200

PATIENT
  Age: 50 Year
  Sex: Male

DRUGS (3)
  1. SEROQUEL [Suspect]
     Indication: BIPOLAR DISORDER
     Dosage: 25-200 MG
     Dates: start: 20060130, end: 20060322
  2. LITHIUM CARBONATE [Concomitant]
  3. LEXAPRO [Concomitant]

REACTIONS (1)
  - DIABETIC KETOACIDOSIS [None]
